FAERS Safety Report 5893901-9 (Version None)
Quarter: 2008Q3

REPORT INFORMATION
  Report Type: 
  Country: None (occurrence: None)
  Receive Date: 20080923
  Receipt Date: 20080220
  Transmission Date: 20090109
  Serious: No
  Sender: FDA-Public Use
  Company Number: US-ASTRAZENECA-2007UW27775

PATIENT
  Age: 39 Year
  Sex: Female

DRUGS (5)
  1. SEROQUEL [Suspect]
     Indication: BIPOLAR DISORDER
     Route: 048
     Dates: start: 20070914, end: 20071125
  2. CYMBALTA [Concomitant]
     Dates: start: 20070713
  3. LISINOPRIL [Concomitant]
  4. HYDROCHLOROTHIAZIDE [Concomitant]
  5. LAMICTAL [Concomitant]
     Indication: BIPOLAR DISORDER
     Route: 048
     Dates: start: 20070801

REACTIONS (4)
  - AKATHISIA [None]
  - DYSPHAGIA [None]
  - DYSPHONIA [None]
  - RESTLESS LEGS SYNDROME [None]
